FAERS Safety Report 4664281-1 (Version None)
Quarter: 2005Q2

REPORT INFORMATION
  Report Type: 
  Country: None (occurrence: None)
  Receive Date: 20050516
  Receipt Date: 20050331
  Transmission Date: 20051028
  Serious: Yes (Death)
  Sender: FDA-Public Use
  Company Number: DEPFP-S-20050013 - V001

PATIENT
  Age: 61 Year
  Sex: Male

DRUGS (12)
  1. BUSULFAN [Suspect]
     Indication: ACUTE MYELOID LEUKAEMIA
     Dosage: 130 MG/M2 EVERY DAY INTRAVENOUS
     Route: 042
     Dates: start: 20040901, end: 20040904
  2. FLUDARABINE [Concomitant]
  3. THYMOGLOBULIN [Concomitant]
  4. AMBISOME [Concomitant]
  5. PENTAMIDINE [Concomitant]
  6. FORTUM [Concomitant]
  7. VANCOMYCIN [Concomitant]
  8. ZOVIRAX [Concomitant]
  9. CLONT [Concomitant]
  10. MERREM [Concomitant]
  11. CLINDAMYCIN HCL [Concomitant]
  12. GRANOCYTE [Concomitant]

REACTIONS (5)
  - DIARRHOEA [None]
  - DYSPHAGIA [None]
  - DYSPHONIA [None]
  - GASTROINTESTINAL MUCOSITIS [None]
  - PHARYNGEAL ULCERATION [None]
